FAERS Safety Report 4446520-5 (Version None)
Quarter: 2004Q3

REPORT INFORMATION
  Report Type: 
  Country: None (occurrence: None)
  Receive Date: 20040902
  Receipt Date: 20040823
  Transmission Date: 20050211
  Serious: Yes (Other)
  Sender: FDA-Public Use
  Company Number: 2004EU001591

PATIENT
  Age: 64 Year
  Sex: Male

DRUGS (3)
  1. FK506 (TACROLIMUS) [Suspect]
     Indication: RENAL TRANSPLANT
     Dosage: D
  2. CORTICOSTEROIDS [Concomitant]
  3. MYCOPHENOLATE MOFETIL (MYCOPHENOLATE MOFETIL) [Concomitant]

REACTIONS (2)
  - CRYPTOCOCCOSIS [None]
  - MONARTHRITIS [None]
